FAERS Safety Report 7700607-X (Version None)
Quarter: 2011Q3

REPORT INFORMATION
  Report Type: 
  Country: None (occurrence: None)
  Receive Date: 20110822
  Receipt Date: 20110822
  Transmission Date: 20111222
  Serious: Yes (Life-Threatening, Hospitalization)
  Sender: FDA-Public Use
  Company Number: None

PATIENT
  Age: 18 Year
  Sex: Female
  Weight: 49.895 kg

DRUGS (2)
  1. NAPROXEN [Concomitant]
  2. AVIANE-28 [Suspect]
     Indication: OVULATION PAIN
     Dosage: ONE TABLET
     Route: 048
     Dates: start: 20110717, end: 20110815

REACTIONS (2)
  - DYSPNOEA [None]
  - PULMONARY EMBOLISM [None]
